FAERS Safety Report 19733107 (Version 1)
Quarter: 2021Q3

REPORT INFORMATION
  Report Type: Spontaneous
  Country: PA (occurrence: PA)
  Receive Date: 20210823
  Receipt Date: 20210823
  Transmission Date: 20211014
  Serious: Yes (Other)
  Sender: FDA-Public Use
  Company Number: PA-CELLTRION INC.-2021PA010452

PATIENT

DRUGS (3)
  1. REMSIMA [Suspect]
     Active Substance: INFLIXIMAB
     Indication: CROHN^S DISEASE
     Dosage: 300 MILLIGRAM INCREASED DRIP EVERY 15 MINUTES ON WEEKS 0?2?6.
     Route: 041
     Dates: start: 20210125
  2. USTEKINUMAB [Suspect]
     Active Substance: USTEKINUMAB
     Indication: PRODUCT USED FOR UNKNOWN INDICATION
     Dosage: UNK
  3. IMURAN [Concomitant]
     Active Substance: AZATHIOPRINE
     Dosage: 100 MG, EVERY 1 DAY
     Dates: start: 202101, end: 202105

REACTIONS (9)
  - Condition aggravated [Unknown]
  - Anxiety [Unknown]
  - Administration site oedema [Unknown]
  - Chest pain [Unknown]
  - Rash [Recovered/Resolved]
  - Neck pain [Unknown]
  - Dyspnoea [Unknown]
  - Administration site erythema [Unknown]
  - Therapy change [Unknown]

NARRATIVE: CASE EVENT DATE: 202101
